FAERS Safety Report 9257614 (Version 2)
Quarter: 2013Q2

REPORT INFORMATION
  Report Type: Spontaneous
  Country: US (occurrence: US)
  Receive Date: 20130426
  Receipt Date: 20130523
  Transmission Date: 20140414
  Serious: Yes (Life-Threatening, Hospitalization, Other)
  Sender: FDA-Public Use
  Company Number: US-JNJFOC-20130411823

PATIENT
  Age: 32 Year
  Sex: Female
  Weight: 56.7 kg

DRUGS (1)
  1. EXTRA STRENGTH TYLENOL [Suspect]
     Indication: ANALGESIC THERAPY
     Dosage: APPROXIMATELY 10 TABLETS OVER 2 DAYS OR 48 TO 55 HOURS
     Route: 048
     Dates: start: 20041207

REACTIONS (9)
  - Renal transplant [Not Recovered/Not Resolved]
  - Liver transplant [Not Recovered/Not Resolved]
  - Coma [Recovered/Resolved]
  - Accidental overdose [Unknown]
  - Haemorrhage [Unknown]
  - Skin haemorrhage [Unknown]
  - Brain oedema [Unknown]
  - Blood glucose decreased [Unknown]
  - Loss of consciousness [None]
